FAERS Safety Report 19719861 (Version 5)
Quarter: 2022Q4

REPORT INFORMATION
  Report Type: Other
  Country: JP (occurrence: JP)
  Receive Date: 20210819
  Receipt Date: 20221209
  Transmission Date: 20230113
  Serious: Yes (Hospitalization, Other)
  Sender: FDA-Public Use
  Company Number: JP-CHUGAI-2021009951

PATIENT
  Age: 73 Year
  Sex: Female
  Weight: 52.2 kg

DRUGS (7)
  1. SATRALIZUMAB [Suspect]
     Active Substance: SATRALIZUMAB
     Indication: Neuromyelitis optica spectrum disorder
     Dosage: 120 MILLIGRAM, ONCE/2WEEKS
     Route: 058
     Dates: start: 20210524, end: 20210621
  2. SATRALIZUMAB [Suspect]
     Active Substance: SATRALIZUMAB
     Route: 058
     Dates: start: 20210721, end: 20210721
  3. CYCLOSPORINE [Suspect]
     Active Substance: CYCLOSPORINE
     Indication: Neuromyelitis optica spectrum disorder
     Route: 065
     Dates: start: 200804, end: 20210721
  4. CYCLOSPORINE [Suspect]
     Active Substance: CYCLOSPORINE
     Route: 048
     Dates: start: 20210511
  5. CYCLOSPORINE [Suspect]
     Active Substance: CYCLOSPORINE
     Route: 048
     Dates: start: 20210821
  6. PREDONINE [Concomitant]
     Active Substance: PREDNISOLONE
     Indication: Neuromyelitis optica spectrum disorder
     Dosage: 50MG/DAY
     Route: 048
     Dates: start: 20210524
  7. PREDONINE [Concomitant]
     Active Substance: PREDNISOLONE
     Dosage: 5MG/DAY
     Route: 048

REACTIONS (5)
  - Delirium [Unknown]
  - Pneumonia [Recovered/Resolved]
  - Urinary tract infection [Recovered/Resolved]
  - Sepsis [Recovered/Resolved]
  - Pyelonephritis [Unknown]

NARRATIVE: CASE EVENT DATE: 20210721
